FAERS Safety Report 10515623 (Version 1)
Quarter: 2014Q4

REPORT INFORMATION
  Report Type: Spontaneous
  Country: US (occurrence: None)
  Receive Date: 20141009
  Receipt Date: 20141009
  Transmission Date: 20150528
  Serious: Yes (Hospitalization)
  Sender: FDA-Public Use
  Company Number: 201409201

PATIENT
  Age: 63 Year
  Sex: Male

DRUGS (2)
  1. TESTIM [Suspect]
     Active Substance: TESTOSTERONE
     Indication: HYPOGONADISM
     Route: 062
     Dates: start: 20120608, end: 20131022
  2. TESTIM [Suspect]
     Active Substance: TESTOSTERONE
     Indication: BLOOD TESTOSTERONE DECREASED
     Route: 062
     Dates: start: 20120608, end: 20131022

REACTIONS (6)
  - Multiple injuries [None]
  - Anxiety [None]
  - Economic problem [None]
  - Deep vein thrombosis [None]
  - Myocardial infarction [None]
  - Unevaluable event [None]

NARRATIVE: CASE EVENT DATE: 20131022
